FAERS Safety Report 24294218 (Version 1)
Quarter: 2024Q3

REPORT INFORMATION
  Report Type: Spontaneous
  Country: US (occurrence: US)
  Receive Date: 20240906
  Receipt Date: 20240906
  Transmission Date: 20241017
  Serious: No
  Sender: DOMPE FARMACEUTICI
  Company Number: US-FARMAPROD-202308-202405-1965

PATIENT
  Sex: Female

DRUGS (9)
  1. OXERVATE [Suspect]
     Active Substance: CENEGERMIN-BKBJ
     Indication: Neurotrophic keratopathy
     Route: 047
  2. OXERVATE [Suspect]
     Active Substance: CENEGERMIN-BKBJ
  3. LEVOTHYROXINE SODIUM [Concomitant]
     Active Substance: LEVOTHYROXINE SODIUM
  4. AMLODIPINE BESYLATE [Concomitant]
     Active Substance: AMLODIPINE BESYLATE
  5. ALENDRONATE SODIUM [Concomitant]
     Active Substance: ALENDRONATE SODIUM
  6. EZETIMIBE [Concomitant]
     Active Substance: EZETIMIBE
  7. AMOXICILLIN [Concomitant]
     Active Substance: AMOXICILLIN
     Dosage: 125 MG/5ML RECONSTITUTED
  8. CALCIUM [Concomitant]
     Active Substance: CALCIUM
     Dosage: 500(1250)
  9. REFRESH CELLUVISC [Concomitant]
     Active Substance: CARBOXYMETHYLCELLULOSE SODIUM
     Dosage: DROPPER GEL

REACTIONS (3)
  - Eye pain [Unknown]
  - Peripheral swelling [Unknown]
  - Photophobia [Unknown]
